FAERS Safety Report 23880192 (Version 2)
Quarter: 2024Q2

REPORT INFORMATION
  Report Type: Spontaneous
  Country: AU (occurrence: None)
  Receive Date: 20240521
  Receipt Date: 20240530
  Transmission Date: 20240715
  Serious: Yes (Death, Hospitalization)
  Sender: FDA-Public Use
  Company Number: AU-ROCHE-3565982

PATIENT
  Age: 77 Year
  Sex: Female

DRUGS (9)
  1. VABYSMO [Suspect]
     Active Substance: FARICIMAB\FARICIMAB-SVOA
     Indication: Age-related macular degeneration
     Dosage: 28.8MG/0.24ML
     Route: 050
     Dates: start: 20240215
  2. VABYSMO [Suspect]
     Active Substance: FARICIMAB\FARICIMAB-SVOA
     Indication: Choroidal neovascularisation
  3. NEXOLE (AUSTRALIA) [Concomitant]
  4. APIXABAN [Concomitant]
     Active Substance: APIXABAN
  5. ROSUVASTATIN [Concomitant]
     Active Substance: ROSUVASTATIN
  6. CANDESARTAN [Concomitant]
     Active Substance: CANDESARTAN
  7. METOPROLOL [Concomitant]
     Active Substance: METOPROLOL
  8. MAGNESIUM [Concomitant]
     Active Substance: MAGNESIUM
  9. EYLEA [Concomitant]
     Active Substance: AFLIBERCEPT
     Indication: Age-related macular degeneration
     Dosage: 5 DOSES
     Dates: start: 202308, end: 202401

REACTIONS (1)
  - Intracranial aneurysm [Fatal]

NARRATIVE: CASE EVENT DATE: 20240515
